FAERS Safety Report 5778367-1 (Version None)
Quarter: 2008Q2

REPORT INFORMATION
  Report Type: 
  Country: None (occurrence: None)
  Receive Date: 20080618
  Receipt Date: 20080618
  Transmission Date: 20081010
  Serious: No
  Sender: FDA-Public Use
  Company Number: None

PATIENT
  Sex: Female
  Weight: 13.8 kg

DRUGS (1)
  1. ACCUTANE [Suspect]
     Dosage: 800 MG
     Dates: start: 20080605, end: 20080612

REACTIONS (3)
  - OPTIC NERVE DISORDER [None]
  - STRABISMUS [None]
  - VISUAL ACUITY REDUCED [None]
